FAERS Safety Report 13690439 (Version 1)
Quarter: 2017Q2

REPORT INFORMATION
  Report Type: Spontaneous
  Country: IT (occurrence: IT)
  Receive Date: 20170626
  Receipt Date: 20170626
  Transmission Date: 20170830
  Serious: Yes (Other)
  Sender: FDA-Public Use
  Company Number: IT-PFIZER INC-2017278088

PATIENT
  Age: 49 Year
  Sex: Female
  Weight: 78 kg

DRUGS (3)
  1. METRONIDAZOLE. [Suspect]
     Active Substance: METRONIDAZOLE
     Indication: ANTI-INFECTIVE THERAPY
     Dosage: 500 MG, QD
     Route: 041
  2. ISOLYTE /01745301/ [Concomitant]
     Indication: FLUID REPLACEMENT
     Dosage: 2000 ML, UNK
     Route: 041
  3. PANTOPRAZOLE [Suspect]
     Active Substance: PANTOPRAZOLE
     Indication: GASTRIC DISORDER
     Dosage: 40 MG, QD
     Route: 042

REACTIONS (2)
  - Infusion site pain [Recovering/Resolving]
  - Flushing [Recovering/Resolving]

NARRATIVE: CASE EVENT DATE: 20170614
